FAERS Safety Report 9500331 (Version 1)
Quarter: 2013Q3

REPORT INFORMATION
  Report Type: Spontaneous
  Country: US (occurrence: None)
  Receive Date: 20130903
  Receipt Date: 20130903
  Transmission Date: 20140515
  Serious: Yes (Other)
  Sender: FDA-Public Use
  Company Number: A1039122A

PATIENT
  Age: 24 Year
  Sex: Male

DRUGS (1)
  1. ALGINIC ACID\ALUMINIUM HYDROXIDE\MAGNESIUM CARBONATE [Suspect]
     Route: 061

REACTIONS (3)
  - Burning sensation [None]
  - Accidental exposure to product [None]
  - Haemorrhage [None]
